FAERS Safety Report 5476333-7 (Version None)
Quarter: 2007Q3

REPORT INFORMATION
  Report Type: 
  Country: None (occurrence: None)
  Receive Date: 20070914
  Receipt Date: 20070810
  Transmission Date: 20080115
  Serious: Yes (Other)
  Sender: FDA-Public Use
  Company Number: 07-259

PATIENT
  Age: 37 Year
  Sex: Male

DRUGS (2)
  1. ALEVE [Suspect]
     Dosage: 1540 MG, DAILY, ORAL 220 MG, DAILY, ORAL
     Route: 048
     Dates: start: 20070801
  2. ALEVE [Suspect]
     Dosage: 1540 MG, DAILY, ORAL 220 MG, DAILY, ORAL
     Route: 048
     Dates: start: 20070805

REACTIONS (3)
  - ABDOMINAL DISTENSION [None]
  - ABDOMINAL PAIN UPPER [None]
  - HAEMATOCHEZIA [None]
